FAERS Safety Report 6688737-5 (Version None)
Quarter: 2010Q2

REPORT INFORMATION
  Report Type: 
  Country: None (occurrence: None)
  Receive Date: 20100420
  Receipt Date: 20100414
  Transmission Date: 20101027
  Serious: Yes (Hospitalization)
  Sender: FDA-Public Use
  Company Number: B0634879A

PATIENT
  Sex: Male

DRUGS (18)
  1. FORTUMSET [Suspect]
     Indication: STAPHYLOCOCCAL SEPSIS
     Dosage: 1G THREE TIMES PER DAY
     Route: 042
     Dates: start: 20091228, end: 20100107
  2. BACTRIM [Suspect]
     Indication: ANTIFUNGAL PROPHYLAXIS
     Dosage: 800MG ALTERNATE DAYS
     Route: 048
     Dates: end: 20100119
  3. NEXIUM [Suspect]
     Indication: DRUG USE FOR UNKNOWN INDICATION
     Dosage: 20MG PER DAY
     Route: 048
     Dates: start: 20091220, end: 20100119
  4. RIFADIN [Suspect]
     Indication: STAPHYLOCOCCAL SEPSIS
     Dosage: 900MG TWICE PER DAY
     Route: 048
     Dates: start: 20100111, end: 20100116
  5. VFEND [Suspect]
     Indication: HYPOALBUMINAEMIA
     Dosage: 40MG PER DAY
     Route: 048
     Dates: start: 20100114, end: 20100116
  6. VANCOMYCIN HCL [Suspect]
     Indication: STAPHYLOCOCCAL SEPSIS
     Dosage: 500MG FOUR TIMES PER DAY
     Route: 042
     Dates: start: 20091231, end: 20100115
  7. PERFALGAN [Concomitant]
     Indication: PYREXIA
     Dosage: 1G FOUR TIMES PER DAY
     Route: 042
     Dates: start: 20091228, end: 20100104
  8. PLITICAN [Concomitant]
     Indication: NAUSEA
     Dosage: 50MG THREE TIMES PER DAY
     Route: 042
     Dates: start: 20091226, end: 20100106
  9. GENTAMICIN [Concomitant]
     Indication: STAPHYLOCOCCAL SEPSIS
     Dosage: 300MG PER DAY
     Route: 042
     Dates: start: 20091231, end: 20100107
  10. NEUPOGEN [Concomitant]
     Indication: NEUTROPENIA
     Dosage: 1UNIT PER DAY
     Route: 042
     Dates: start: 20091225, end: 20100104
  11. COLIMYCINE [Concomitant]
     Indication: DRUG USE FOR UNKNOWN INDICATION
     Dosage: 1.5IU3 THREE TIMES PER DAY
     Route: 048
     Dates: start: 20091226, end: 20100106
  12. ZOPHREN [Concomitant]
     Indication: NAUSEA
     Dosage: 16MG PER DAY
     Route: 042
     Dates: start: 20091230, end: 20100106
  13. DUPHALAC [Concomitant]
     Indication: CONSTIPATION
     Route: 048
     Dates: start: 20091222
  14. NUBAIN [Concomitant]
     Indication: PAIN
     Dosage: 80MG PER DAY
     Route: 042
     Dates: start: 20091231, end: 20091231
  15. FUNGIZONE [Concomitant]
     Indication: DRUG USE FOR UNKNOWN INDICATION
     Dosage: 5ML THREE TIMES PER DAY
     Route: 048
     Dates: start: 20091218
  16. MORPHINE [Concomitant]
     Indication: PAIN
     Dosage: 40MG PER DAY
     Route: 042
     Dates: start: 20100101, end: 20100104
  17. ALBUMIN (HUMAN) [Concomitant]
     Indication: HYPOALBUMINAEMIA
     Dosage: 40G PER DAY
     Route: 042
     Dates: start: 20100103, end: 20100104
  18. CHEMOTHERAPY [Concomitant]
     Indication: NON-HODGKIN'S LYMPHOMA
     Route: 065
     Dates: start: 20091218, end: 20091224

REACTIONS (14)
  - ABNORMAL SENSATION IN EYE [None]
  - BLISTER [None]
  - CONDITION AGGRAVATED [None]
  - ERYTHEMA [None]
  - EYE IRRITATION [None]
  - EYELID OEDEMA [None]
  - FACE OEDEMA [None]
  - OCULAR DISCOMFORT [None]
  - ORAL DISORDER [None]
  - PARAESTHESIA [None]
  - PRURITUS [None]
  - RASH [None]
  - SKIN DISORDER [None]
  - STEVENS-JOHNSON SYNDROME [None]
